FAERS Safety Report 25943376 (Version 2)
Quarter: 2025Q4

REPORT INFORMATION
  Report Type: Spontaneous
  Country: US (occurrence: US)
  Receive Date: 20251021
  Receipt Date: 20251024
  Transmission Date: 20260118
  Serious: Yes (Other)
  Sender: AUROBINDO
  Company Number: US-MLMSERVICE-20251001-PI664614-00033-1

PATIENT
  Age: 70 Year
  Sex: Female

DRUGS (5)
  1. ARGATROBAN [Suspect]
     Active Substance: ARGATROBAN
     Indication: Pulmonary embolism
     Dosage: CONTINUOUS INFUSION
     Route: 065
  2. ARGATROBAN [Suspect]
     Active Substance: ARGATROBAN
     Indication: Deep vein thrombosis
  3. ASPIRIN [Suspect]
     Active Substance: ASPIRIN
     Indication: Coronary artery disease
     Dosage: UNK
     Route: 065
  4. BUPIVACAINE [Concomitant]
     Active Substance: BUPIVACAINE
     Indication: Back pain
     Dosage: UNK
     Route: 037
  5. MORPHINE [Concomitant]
     Active Substance: MORPHINE
     Indication: Back pain
     Dosage: UNK
     Route: 037

REACTIONS (1)
  - Haematochezia [Unknown]
